FAERS Safety Report 18042639 (Version 1)
Quarter: 2020Q3

REPORT INFORMATION
  Report Type: Spontaneous
  Country: FR (occurrence: FR)
  Receive Date: 20200720
  Receipt Date: 20200720
  Transmission Date: 20201103
  Serious: Yes (Hospitalization)
  Sender: FDA-Public Use
  Company Number: FR-TEVA-2020-FR-1801741

PATIENT
  Age: 76 Year
  Sex: Male
  Weight: 94 kg

DRUGS (19)
  1. CONTRAMAL 50 MG, GELULE [Concomitant]
     Active Substance: TRAMADOL HYDROCHLORIDE
     Dosage: 50 MG
     Route: 048
  2. VICTOZA [Concomitant]
     Active Substance: LIRAGLUTIDE
     Dosage: 1.8 MG
     Route: 058
  3. LYRICA [Concomitant]
     Active Substance: PREGABALIN
     Dosage: 300 MG
     Route: 048
  4. CEFAZOLINE MYLAN 1 G, POUDRE POUR SOLUTION INJECTABLE (IM?IV) [Suspect]
     Active Substance: CEFAZOLIN SODIUM
     Indication: INFECTION
     Dosage: 700 MG
     Route: 042
     Dates: start: 20200229
  5. AUGMENTIN [Suspect]
     Active Substance: AMOXICILLIN\CLAVULANATE POTASSIUM
     Indication: INFECTION
     Route: 048
     Dates: start: 20200302, end: 20200302
  6. OPHTIM 0,25 POUR CENT (0,625 MG/0,25 ML), COLLYRE EN RECIPIENT UNIDOSE [Concomitant]
     Dosage: 2 GTT
     Route: 047
  7. ATORVASTATINE [Concomitant]
     Active Substance: ATORVASTATIN
     Dosage: 40 MG
     Route: 048
  8. DOLIPRANE [Concomitant]
     Active Substance: ACETAMINOPHEN
     Dosage: 1 GRAM
     Route: 048
  9. MONOPROST 50 MICROGRAMMES/ML, COLLYRE EN SOLUTION EN RECIPIENT UNIDOSE [Concomitant]
     Dosage: 1 GTT
     Route: 047
  10. DAPTOMYCINE MEDAC [Concomitant]
     Indication: INFECTION
     Route: 042
     Dates: start: 20200221, end: 20200227
  11. PANTOPRAZOLE [Concomitant]
     Active Substance: PANTOPRAZOLE
     Dosage: 40 MG
     Route: 048
  12. VORICONAZOLE. [Suspect]
     Active Substance: VORICONAZOLE
     Indication: INFECTION
     Dosage: 700 MG
     Route: 048
     Dates: start: 20200221, end: 20200302
  13. FUROSEMIDE. [Concomitant]
     Active Substance: FUROSEMIDE
     Dosage: 180 MG
     Route: 042
  14. ELIQUIS [Concomitant]
     Active Substance: APIXABAN
     Dosage: 10 MG
     Route: 048
  15. LEVOFLOXACINE ARROW 500 MG, COMPRIME PELLICULE SECABLE [Suspect]
     Active Substance: LEVOFLOXACIN
     Indication: INFECTION
     Dosage: 500 MG
     Route: 048
     Dates: start: 20200229
  16. LAROXYL 40 MG/ML, SOLUTION BUVABLE [Concomitant]
     Active Substance: AMITRIPTYLINE HYDROCHLORIDE
     Dosage: 15 GTT
     Route: 048
  17. NEBIVOLOL. [Concomitant]
     Active Substance: NEBIVOLOL
     Dosage: 5 MG
     Route: 048
  18. TOUJEO [Concomitant]
     Active Substance: INSULIN GLARGINE
     Dosage: 26 IU
     Route: 058
  19. XATRAL LP 10 MG, COMPRIME A LIBERATION PROLONGEE [Concomitant]
     Active Substance: ALFUZOSIN
     Dosage: 10 MG
     Route: 048

REACTIONS (1)
  - Epilepsy [Recovered/Resolved]

NARRATIVE: CASE EVENT DATE: 20200302
